FAERS Safety Report 12195868 (Version 3)
Quarter: 2016Q2

REPORT INFORMATION
  Report Type: Spontaneous
  Country: AU (occurrence: AU)
  Receive Date: 20160321
  Receipt Date: 20160511
  Transmission Date: 20160815
  Serious: Yes (Other)
  Sender: FDA-Public Use
  Company Number: AU-ASTELLAS-2016US010203

PATIENT
  Age: 53 Year
  Sex: Female
  Weight: 115 kg

DRUGS (3)
  1. LOSEC [Concomitant]
     Active Substance: OMEPRAZOLE
     Indication: GASTROOESOPHAGEAL REFLUX DISEASE
     Route: 065
     Dates: start: 20150312
  2. BETMIGA [Suspect]
     Active Substance: MIRABEGRON
     Indication: HYPERTONIC BLADDER
     Route: 048
     Dates: start: 20150908, end: 20151126
  3. OXYBUTYNIN [Concomitant]
     Active Substance: OXYBUTYNIN
     Indication: INCONTINENCE
     Dosage: UNK UNK, TWICE WEEKLY
     Route: 065
     Dates: start: 20150312

REACTIONS (3)
  - Neuropathy peripheral [Recovered/Resolved]
  - Hypoacusis [Recovered/Resolved]
  - Hallucination, olfactory [Recovered/Resolved]

NARRATIVE: CASE EVENT DATE: 20151005
